FAERS Safety Report 10108322 (Version 1)
Quarter: 2014Q2

REPORT INFORMATION
  Report Type: Spontaneous
  Country: BR (occurrence: BR)
  Receive Date: 20140425
  Receipt Date: 20140425
  Transmission Date: 20141212
  Serious: Yes (Other)
  Sender: FDA-Public Use
  Company Number: BR-ROCHE-1389797

PATIENT
  Age: 55 Year
  Sex: Female
  Weight: 60 kg

DRUGS (1)
  1. VALIUM [Suspect]
     Indication: ANXIETY DISORDER
     Route: 065

REACTIONS (3)
  - Breast cancer [Recovered/Resolved]
  - Pharyngitis [Not Recovered/Not Resolved]
  - Influenza [Not Recovered/Not Resolved]
